FAERS Safety Report 6501699-6 (Version None)
Quarter: 2009Q4

REPORT INFORMATION
  Report Type: 
  Country: None (occurrence: None)
  Receive Date: 20091216
  Receipt Date: 20090814
  Transmission Date: 20100525
  Serious: No
  Sender: FDA-Public Use
  Company Number: US-AMGEN-KDL360265

PATIENT
  Sex: Female

DRUGS (8)
  1. ARANESP [Suspect]
     Indication: MYELODYSPLASTIC SYNDROME
     Dates: end: 20090803
  2. PROCRIT [Suspect]
     Indication: MYELODYSPLASTIC SYNDROME
  3. TYLENOL (CAPLET) [Concomitant]
  4. UNSPECIFIED ANTINEOPLASTIC AGENT [Concomitant]
  5. HERBAL SUPPLEMENT [Concomitant]
  6. MULTI-VITAMINS [Concomitant]
  7. LEXAPRO [Concomitant]
  8. PROTONIX [Concomitant]

REACTIONS (13)
  - ASTHENIA [None]
  - BLOOD CALCIUM ABNORMAL [None]
  - BODY TEMPERATURE INCREASED [None]
  - DISCOMFORT [None]
  - DISEASE PROGRESSION [None]
  - DIZZINESS [None]
  - DRUG INEFFECTIVE [None]
  - GASTROINTESTINAL MOTILITY DISORDER [None]
  - HEADACHE [None]
  - IMMUNE SYSTEM DISORDER [None]
  - MOBILITY DECREASED [None]
  - NAUSEA [None]
  - WEIGHT DECREASED [None]
